FAERS Safety Report 15557579 (Version 1)
Quarter: 2018Q4

REPORT INFORMATION
  Report Type: Report from Study
  Country: None (occurrence: US)
  Receive Date: 20181027
  Receipt Date: 20181027
  Transmission Date: 20190205
  Serious: Yes (Other)
  Sender: FDA-Public Use
  Company Number: US-ABBVIE-17K-163-2064241-00

PATIENT
  Sex: Male

DRUGS (1)
  1. HUMIRA [Suspect]
     Active Substance: ADALIMUMAB
     Indication: PSORIATIC ARTHROPATHY
     Route: 058

REACTIONS (17)
  - Arthropathy [Unknown]
  - Alopecia [Unknown]
  - Joint injury [Unknown]
  - Swelling of eyelid [Unknown]
  - Hypoaesthesia [Unknown]
  - Nerve compression [Unknown]
  - Pain [Unknown]
  - Psoriasis [Unknown]
  - Eye pain [Unknown]
  - Arthralgia [Unknown]
  - Pruritus [Unknown]
  - Sensitivity to weather change [Unknown]
  - Sinusitis [Unknown]
  - Headache [Unknown]
  - Psoriatic arthropathy [Unknown]
  - Pain in extremity [Unknown]
  - Drug effect incomplete [Unknown]

NARRATIVE: CASE EVENT DATE: 2018
